FAERS Safety Report 17579383 (Version 2)
Quarter: 2021Q2

REPORT INFORMATION
  Report Type: Spontaneous
  Country: US (occurrence: US)
  Receive Date: 20200325
  Receipt Date: 20210402
  Transmission Date: 20210716
  Serious: No
  Sender: FDA-Public Use
  Company Number: US-ALLERGAN-2008440US

PATIENT
  Age: 76 Year
  Sex: Female

DRUGS (1)
  1. OXYTROL [Suspect]
     Active Substance: OXYBUTYNIN
     Indication: HYPERTONIC BLADDER
     Dosage: 1 DF, Q WEEK
     Route: 062
     Dates: end: 202002

REACTIONS (9)
  - Limb discomfort [Unknown]
  - Blood glucose increased [Unknown]
  - Muscle spasms [Unknown]
  - Pain [Unknown]
  - Cardiac disorder [Unknown]
  - Feeling abnormal [Unknown]
  - Chest discomfort [Unknown]
  - Flatulence [Unknown]
  - Pain in extremity [Not Recovered/Not Resolved]
